FAERS Safety Report 24664271 (Version 3)
Quarter: 2025Q2

REPORT INFORMATION
  Report Type: Report from Study
  Country: IT (occurrence: IT)
  Receive Date: 20241126
  Receipt Date: 20250618
  Transmission Date: 20250717
  Serious: Yes (Other)
  Sender: TAKEDA
  Company Number: IT-TAKEDA-2024TUS117314

PATIENT
  Sex: Male

DRUGS (3)
  1. RURIOCTOCOG ALFA PEGOL [Suspect]
     Active Substance: RURIOCTOCOG ALFA PEGOL
     Indication: Haemophilia
     Dosage: 4000 INTERNATIONAL UNIT, 2/WEEK
  2. RURIOCTOCOG ALFA PEGOL [Suspect]
     Active Substance: RURIOCTOCOG ALFA PEGOL
     Dosage: 4000 INTERNATIONAL UNIT, 3/WEEK
  3. RURIOCTOCOG ALFA PEGOL [Suspect]
     Active Substance: RURIOCTOCOG ALFA PEGOL
     Dosage: 5000 INTERNATIONAL UNIT, Q2WEEKS

REACTIONS (1)
  - Haemophilic arthropathy [Recovering/Resolving]

NARRATIVE: CASE EVENT DATE: 20240801
